FAERS Safety Report 14703884 (Version 2)
Quarter: 2018Q2

REPORT INFORMATION
  Report Type: Spontaneous
  Country: US (occurrence: US)
  Receive Date: 20180402
  Receipt Date: 20180608
  Transmission Date: 20180711
  Serious: No
  Sender: FDA-Public Use
  Company Number: US-PFIZER INC-2018131026

PATIENT
  Age: 64 Year
  Sex: Male
  Weight: 158.7 kg

DRUGS (2)
  1. POTASSIUM [Concomitant]
     Active Substance: POTASSIUM
     Dosage: UNK
  2. VIAGRA [Suspect]
     Active Substance: SILDENAFIL CITRATE
     Indication: ERECTILE DYSFUNCTION
     Dosage: 100 MG, ALTERNATE DAY, (TAKEN ONCE ABOUT EVERY OTHER DAY)
     Route: 048
     Dates: start: 201706

REACTIONS (1)
  - Malaise [Unknown]
